APPROVED DRUG PRODUCT: MITOMYCIN
Active Ingredient: MITOMYCIN
Strength: 20MG/VIAL
Dosage Form/Route: INJECTABLE;INJECTION
Application: A202670 | Product #002 | TE Code: AP
Applicant: RK PHARMA INC
Approved: Oct 13, 2017 | RLD: No | RS: No | Type: RX